FAERS Safety Report 4855056-9 (Version None)
Quarter: 2005Q4

REPORT INFORMATION
  Report Type: 
  Country: None (occurrence: None)
  Receive Date: 20051125
  Receipt Date: 20041019
  Transmission Date: 20060501
  Serious: Yes (Other)
  Sender: FDA-Public Use
  Company Number: US-JNJFOC-20041005942

PATIENT
  Age: 61 Year
  Sex: Female
  Weight: 50.3493 kg

DRUGS (1)
  1. LEVAQUIN [Suspect]
     Indication: CELLULITIS

REACTIONS (1)
  - HYPERSENSITIVITY [None]
